FAERS Safety Report 11029479 (Version 1)
Quarter: 2015Q2

REPORT INFORMATION
  Report Type: Spontaneous
  Country: US (occurrence: None)
  Receive Date: 20150414
  Receipt Date: 20150414
  Transmission Date: 20150821
  Serious: Yes (Death, Life-Threatening)
  Sender: FDA-Public Use
  Company Number: None

PATIENT
  Age: 82 Year
  Sex: Male
  Weight: 54.89 kg

DRUGS (6)
  1. MORPHINE [Suspect]
     Active Substance: MORPHINE
  2. FISH OIL [Concomitant]
     Active Substance: FISH OIL
  3. LORAZAPAM [Suspect]
     Active Substance: LORAZEPAM
  4. PRILOSEC [Concomitant]
     Active Substance: OMEPRAZOLE MAGNESIUM
  5. HALDOL [Suspect]
     Active Substance: HALOPERIDOL
     Indication: DRUG THERAPY
     Dates: start: 20140504, end: 20140524
  6. CALCIUM [Concomitant]
     Active Substance: CALCIUM

REACTIONS (7)
  - Cystitis [None]
  - General physical health deterioration [None]
  - Hypophagia [None]
  - Coma [None]
  - Hypersomnia [None]
  - Contraindication to medical treatment [None]
  - Sedation [None]

NARRATIVE: CASE EVENT DATE: 20140504
